FAERS Safety Report 20801493 (Version 1)
Quarter: 2022Q2

REPORT INFORMATION
  Report Type: Spontaneous
  Country: US (occurrence: None)
  Receive Date: 20220506
  Receipt Date: 20220506
  Transmission Date: 20220721
  Serious: Yes (Hospitalization)
  Sender: FDA-Public Use
  Company Number: None

PATIENT
  Age: 72 Year
  Sex: Female
  Weight: 57.61 kg

DRUGS (21)
  1. KEYTRUDA [Suspect]
     Active Substance: PEMBROLIZUMAB
     Indication: Renal cancer
     Route: 042
     Dates: start: 20220421
  2. BACILLUS COAGULANS [Concomitant]
     Active Substance: BACILLUS COAGULANS
  3. INULIN [Concomitant]
     Active Substance: INULIN
  4. BIOSIL [Concomitant]
  5. CITRUCEL [Concomitant]
  6. DULCOLAX STOOL SOFTNER [Concomitant]
  7. ESCITALOPRAM OXLATE [Concomitant]
  8. FERROUS SULFATE [Concomitant]
  9. FLUTICASONE PROPIONATE [Concomitant]
  10. INLYTA [Concomitant]
     Active Substance: AXITINIB
  11. KEYTRUDA [Concomitant]
  12. LEVOTHYROXINE SODIUM [Concomitant]
     Active Substance: LEVOTHYROXINE SODIUM
  13. LORAZEPAM [Concomitant]
     Active Substance: LORAZEPAM
  14. MELOXICAM [Concomitant]
     Active Substance: MELOXICAM
  15. MIRALAX ORAL [Concomitant]
  16. MULTIVITAMIN ADULT [Concomitant]
  17. PANTOPRAZOLE SODIUM [Concomitant]
     Active Substance: PANTOPRAZOLE SODIUM
  18. PROBIOTIC DAILY [Concomitant]
  19. TRAZODONE HCI [Concomitant]
  20. VITAMIN B12 [Concomitant]
     Active Substance: CYANOCOBALAMIN
  21. VITAMIN D [Concomitant]
     Active Substance: VITAMIN D NOS

REACTIONS (8)
  - Rash [None]
  - Confusional state [None]
  - Blood pressure increased [None]
  - Vision blurred [None]
  - Diplopia [None]
  - Pneumonitis [None]
  - Seizure [None]
  - Therapy interrupted [None]

NARRATIVE: CASE EVENT DATE: 20220424
